FAERS Safety Report 25192078 (Version 1)
Quarter: 2025Q2

REPORT INFORMATION
  Report Type: Spontaneous
  Country: US (occurrence: None)
  Receive Date: 20250413
  Receipt Date: 20250413
  Transmission Date: 20250716
  Serious: No
  Sender: FDA-CTU
  Company Number: None

PATIENT
  Age: 34 Year
  Sex: Male
  Weight: 112.5 kg

DRUGS (9)
  1. LYBALVI [Suspect]
     Active Substance: OLANZAPINE\SAMIDORPHAN L-MALATE
     Indication: Schizophrenia
  2. INVEGA [Suspect]
     Active Substance: PALIPERIDONE
  3. HALDOL [Suspect]
     Active Substance: HALOPERIDOL
  4. RISPERDAL [Suspect]
     Active Substance: RISPERIDONE
  5. DESCOVY [Concomitant]
     Active Substance: EMTRICITABINE\TENOFOVIR ALAFENAMIDE FUMARATE
  6. TIVICAY [Concomitant]
     Active Substance: DOLUTEGRAVIR SODIUM
  7. LYBALVI [Concomitant]
     Active Substance: OLANZAPINE\SAMIDORPHAN L-MALATE
  8. OMEPRAZOLE [Concomitant]
     Active Substance: OMEPRAZOLE
  9. VITAMIN D [Concomitant]
     Active Substance: VITAMIN D NOS

REACTIONS (2)
  - Memory impairment [None]
  - Peripheral swelling [None]

NARRATIVE: CASE EVENT DATE: 20250412
